FAERS Safety Report 10389908 (Version 1)
Quarter: 2014Q3

REPORT INFORMATION
  Report Type: Spontaneous
  Country: GB (occurrence: None)
  Receive Date: 20140813
  Receipt Date: 20140813
  Transmission Date: 20150326
  Serious: Yes (Disabling)
  Sender: FDA-Public Use
  Company Number: AUR-APL-2014-08428

PATIENT
  Age: 49 Year
  Sex: Male
  Weight: 73 kg

DRUGS (2)
  1. DOXAZOSINE (DOXAZOSIN MESILATE) [Concomitant]
     Active Substance: DOXAZOSIN MESYLATE
  2. TAMSULOSIN [Suspect]
     Active Substance: TAMSULOSIN
     Indication: PRODUCT USED FOR UNKNOWN INDICATION
     Dates: start: 20140529

REACTIONS (2)
  - Joint stiffness [None]
  - Dizziness [None]

NARRATIVE: CASE EVENT DATE: 20140724
